FAERS Safety Report 9192148 (Version 1)
Quarter: 2013Q1

REPORT INFORMATION
  Report Type: Spontaneous
  Country: AU (occurrence: None)
  Receive Date: 20130325
  Receipt Date: 20130325
  Transmission Date: 20140127
  Serious: Yes (Disabling)
  Sender: FDA-Public Use
  Company Number: FK201300810

PATIENT
  Age: 29 Year
  Sex: Female

DRUGS (2)
  1. DEFEROXAMINE MESYLATE [Suspect]
     Indication: IRON OVERLOAD
     Dosage: 40 MG/KG, SIX TIMES PER WEEK, SUBCUTANEOUS
     Route: 058
  2. DEFERIPRONE [Concomitant]

REACTIONS (3)
  - Optic neuropathy [None]
  - Retinitis pigmentosa [None]
  - Retinitis pigmentosa [None]
